FAERS Safety Report 6689214-8 (Version None)
Quarter: 2010Q2

REPORT INFORMATION
  Report Type: 
  Country: None (occurrence: None)
  Receive Date: 20100413
  Receipt Date: 20100408
  Transmission Date: 20101027
  Serious: Yes (Hospitalization)
  Sender: FDA-Public Use
  Company Number: 2010SP020577

PATIENT
  Age: 73 Year
  Sex: Female
  Weight: 66.2 kg

DRUGS (2)
  1. TEMOZOLOMIDE [Suspect]
     Indication: MALIGNANT GLIOMA
     Dosage: 75 MG/M2;QD
  2. BIBW 2992 (INVESTIGATIONAL DRUG) [Suspect]
     Indication: MALIGNANT GLIOMA
     Dosage: 40 MG;PO
     Route: 048

REACTIONS (3)
  - DEHYDRATION [None]
  - DIARRHOEA [None]
  - NAUSEA [None]
